FAERS Safety Report 14166710 (Version 7)
Quarter: 2018Q3

REPORT INFORMATION
  Report Type: Spontaneous
  Country: US (occurrence: US)
  Receive Date: 20171107
  Receipt Date: 20180816
  Transmission Date: 20181010
  Serious: Yes (Hospitalization, Other)
  Sender: FDA-Public Use
  Company Number: US-009507513-1711USA002431

PATIENT
  Sex: Female
  Weight: 90.7 kg

DRUGS (2)
  1. NUVARING [Suspect]
     Active Substance: ETHINYL ESTRADIOL\ETONOGESTREL
     Indication: CONTRACEPTION
     Dosage: UNK
     Route: 067
     Dates: start: 20110729
  2. NUVARING [Suspect]
     Active Substance: ETHINYL ESTRADIOL\ETONOGESTREL
     Dosage: INSERT 1, LEAVE IN PLACE X 3 WEEKS, REMOVE FOR 1 WEEK
     Route: 067
     Dates: start: 2014, end: 201511

REACTIONS (21)
  - Nausea [Unknown]
  - Hypertension [Unknown]
  - Hypercoagulation [Unknown]
  - Palpitations [Unknown]
  - Sinus disorder [Unknown]
  - Hepatic enzyme increased [Unknown]
  - Pulmonary embolism [Recovering/Resolving]
  - Sinusitis [Unknown]
  - Seizure [Recovered/Resolved]
  - Pain in jaw [Unknown]
  - Obesity [Unknown]
  - Fatigue [Unknown]
  - Hepatic steatosis [Unknown]
  - Hyperthyroidism [Unknown]
  - Drug hypersensitivity [Unknown]
  - Heart rate increased [Unknown]
  - Electrocardiogram ST-T segment abnormal [Unknown]
  - Pulmonary arterial pressure increased [Recovering/Resolving]
  - Tricuspid valve incompetence [Recovering/Resolving]
  - Weight increased [Unknown]
  - Maternal exposure before pregnancy [Unknown]

NARRATIVE: CASE EVENT DATE: 2015
